FAERS Safety Report 16607575 (Version 1)
Quarter: 2019Q3

REPORT INFORMATION
  Report Type: Other
  Country: FR (occurrence: FR)
  Receive Date: 20190722
  Receipt Date: 20190722
  Transmission Date: 20191004
  Serious: Yes (Life-Threatening, Other)
  Sender: FDA-Public Use
  Company Number: FR-APOTEX-2019AP018474

PATIENT

DRUGS (6)
  1. OXAZEPAM. [Suspect]
     Active Substance: OXAZEPAM
     Indication: TOXICITY TO VARIOUS AGENTS
     Dosage: 300 MG, UNK
     Route: 048
     Dates: start: 20190614
  2. NALTREXONE HYDROCHLORIDE. [Suspect]
     Active Substance: NALTREXONE HYDROCHLORIDE
     Indication: TOXICITY TO VARIOUS AGENTS
     Dosage: 2.4 G, UNK
     Route: 048
     Dates: start: 20190614
  3. NUROFEN                            /00109201/ [Suspect]
     Active Substance: IBUPROFEN
     Indication: TOXICITY TO VARIOUS AGENTS
     Dosage: 2.8 G, UNK
     Route: 048
     Dates: start: 20190614
  4. VALPROMIDE [Suspect]
     Active Substance: VALPROMIDE
     Indication: TOXICITY TO VARIOUS AGENTS
     Dosage: 12 G, UNK
     Route: 048
     Dates: start: 20190614
  5. HYDROXYZINE HYDROCHLORIDE. [Suspect]
     Active Substance: HYDROXYZINE HYDROCHLORIDE
     Indication: TOXICITY TO VARIOUS AGENTS
     Dosage: 375 MG, UNK
     Route: 048
     Dates: start: 20190614
  6. PAROXETINE. [Suspect]
     Active Substance: PAROXETINE
     Indication: TOXICITY TO VARIOUS AGENTS
     Dosage: 880 MG, UNK
     Route: 048
     Dates: start: 20190614

REACTIONS (4)
  - Coma [Recovered/Resolved]
  - Agitation [Recovered/Resolved]
  - Toxicity to various agents [Recovered/Resolved]
  - Hypertension [Recovered/Resolved]

NARRATIVE: CASE EVENT DATE: 20190614
